FAERS Safety Report 6311629-8 (Version None)
Quarter: 2009Q3

REPORT INFORMATION
  Report Type: 
  Country: None (occurrence: None)
  Receive Date: 20090817
  Receipt Date: 20090807
  Transmission Date: 20100115
  Serious: Yes (Hospitalization)
  Sender: FDA-Public Use
  Company Number: B0568436A

PATIENT
  Age: 68 Year
  Sex: Male

DRUGS (3)
  1. AUGMENTIN '125' [Suspect]
     Indication: URINARY TRACT INFECTION
     Route: 048
     Dates: start: 20080501
  2. IBUPROFENO [Suspect]
     Indication: URINARY TRACT INFECTION
     Dosage: 600MG THREE TIMES PER DAY
     Route: 048
     Dates: start: 20080501
  3. TROMALYT [Suspect]
     Indication: INTERMITTENT CLAUDICATION
     Dosage: 150MG PER DAY
     Route: 048
     Dates: end: 20080528

REACTIONS (2)
  - DRUG INTERACTION [None]
  - RENAL FAILURE ACUTE [None]
